FAERS Safety Report 5476005-9 (Version None)
Quarter: 2007Q4

REPORT INFORMATION
  Report Type: 
  Country: None (occurrence: None)
  Receive Date: 20071003
  Receipt Date: 20070921
  Transmission Date: 20080405
  Serious: Yes (Hospitalization)
  Sender: FDA-Public Use
  Company Number: DE-ROCHE-515128

PATIENT
  Age: 38 Year
  Sex: Male
  Weight: 96 kg

DRUGS (3)
  1. PEG-INTERFERON A-2A (RO 25-8310) [Suspect]
     Route: 058
     Dates: start: 20070803
  2. RIBAVIRIN [Suspect]
     Route: 048
     Dates: start: 20070803
  3. DOXEPIN HCL [Concomitant]
     Indication: ANXIETY

REACTIONS (1)
  - RESTLESSNESS [None]
